FAERS Safety Report 5571057-X (Version None)
Quarter: 2007Q4

REPORT INFORMATION
  Report Type: 
  Country: None (occurrence: None)
  Receive Date: 20071219
  Receipt Date: 20071210
  Transmission Date: 20080405
  Serious: Yes (Hospitalization)
  Sender: FDA-Public Use
  Company Number: 430014J07USA

PATIENT
  Age: 43 Year
  Sex: Male
  Weight: 72.5755 kg

DRUGS (5)
  1. NOVANTRONE [Suspect]
     Indication: MULTIPLE SCLEROSIS
     Dosage: 1 IN 3 MONTHS
     Dates: start: 20070801
  2. REBIF [Suspect]
     Indication: OFF LABEL USE
     Dosage: 44 MCG, 3 IN 1 WEEKS, SUBCUTANEOUS
     Route: 058
     Dates: start: 20050101, end: 20071101
  3. AMANTADINE HCL [Concomitant]
  4. BACLOFEN [Concomitant]
  5. ARICEPT [Concomitant]

REACTIONS (5)
  - CATHETER RELATED INFECTION [None]
  - CONFUSIONAL STATE [None]
  - ENTEROCOCCAL SEPSIS [None]
  - OFF LABEL USE [None]
  - URINARY TRACT INFECTION [None]
